FAERS Safety Report 14457185 (Version 1)
Quarter: 2018Q1

REPORT INFORMATION
  Report Type: Report from Study
  Country: IN (occurrence: IN)
  Receive Date: 20180130
  Receipt Date: 20180130
  Transmission Date: 20180509
  Serious: Yes (Other)
  Sender: FDA-Public Use
  Company Number: PHHY2016IN048239

PATIENT
  Age: 37 Year
  Sex: Female
  Weight: 52 kg

DRUGS (6)
  1. TASIGNA [Suspect]
     Active Substance: NILOTINIB
     Dosage: 200 MG, BID
     Route: 048
     Dates: start: 20170215, end: 20170419
  2. TASIGNA [Suspect]
     Active Substance: NILOTINIB
     Dosage: 400 MG IN MORNING AND 200 MG IN EVENING
     Route: 048
     Dates: start: 20170419
  3. TASIGNA [Suspect]
     Active Substance: NILOTINIB
     Dosage: 300 MG, BID
     Route: 048
     Dates: start: 20170419, end: 20180120
  4. TASIGNA [Suspect]
     Active Substance: NILOTINIB
     Indication: CHRONIC MYELOID LEUKAEMIA
     Dosage: 400 MG, BID
     Route: 048
     Dates: start: 20160201, end: 201603
  5. TASIGNA [Suspect]
     Active Substance: NILOTINIB
     Dosage: 200 MG, BID
     Route: 048
     Dates: start: 201603, end: 201611
  6. TASIGNA [Suspect]
     Active Substance: NILOTINIB
     Dosage: 400 MG, BID
     Route: 048
     Dates: start: 201611, end: 20170215

REACTIONS (8)
  - Cytogenetic analysis abnormal [Unknown]
  - Pain [Recovered/Resolved]
  - Drug resistance [Unknown]
  - White blood cell count increased [Unknown]
  - Headache [Not Recovered/Not Resolved]
  - Rhinitis [Unknown]
  - Asthenia [Recovered/Resolved]
  - Hyperthermia [Unknown]

NARRATIVE: CASE EVENT DATE: 201603
